FAERS Safety Report 5680666-9 (Version None)
Quarter: 2008Q1

REPORT INFORMATION
  Report Type: 
  Country: None (occurrence: None)
  Receive Date: 20080326
  Receipt Date: 20070726
  Transmission Date: 20080703
  Serious: No
  Sender: FDA-Public Use
  Company Number: US-BAUSCH-2007BL002573

PATIENT
  Age: 49 Year
  Sex: Female

DRUGS (3)
  1. LOTEMAX [Suspect]
     Indication: EYE INFLAMMATION
     Route: 047
     Dates: start: 20070711, end: 20070714
  2. RESTASIS [Concomitant]
     Indication: KERATOCONJUNCTIVITIS SICCA
     Route: 047
  3. THERATEARS [Concomitant]
     Indication: KERATOCONJUNCTIVITIS SICCA
     Route: 047

REACTIONS (3)
  - DRUG HYPERSENSITIVITY [None]
  - EYE IRRITATION [None]
  - EYE PAIN [None]
